FAERS Safety Report 8674249 (Version 2)
Quarter: 2013Q4

REPORT INFORMATION
  Report Type: Report from Study
  Country: IT (occurrence: IT)
  Receive Date: 20120719
  Receipt Date: 20131014
  Transmission Date: 20140711
  Serious: Yes (Hospitalization)
  Sender: FDA-Public Use
  Company Number: IT-GLAXOSMITHKLINE-B0815711A

PATIENT
  Sex: Female

DRUGS (2)
  1. PAZOPANIB [Suspect]
     Indication: OVARIAN CANCER
     Route: 065
     Dates: start: 20120611
  2. PACLITAXEL [Suspect]
     Indication: OVARIAN CANCER
     Route: 065
     Dates: start: 20120611

REACTIONS (1)
  - Ileus [Recovered/Resolved with Sequelae]
